FAERS Safety Report 10076515 (Version 2)
Quarter: 2014Q2

REPORT INFORMATION
  Report Type: Spontaneous
  Country: IT (occurrence: IT)
  Receive Date: 20140414
  Receipt Date: 20140422
  Transmission Date: 20141212
  Serious: Yes (Other)
  Sender: FDA-Public Use
  Company Number: IT-TEVA-473158ISR

PATIENT
  Age: 42 Year
  Sex: Female

DRUGS (3)
  1. METHOTREXATE [Suspect]
     Indication: ECTOPIC PREGNANCY TERMINATION
     Dosage: 50MG
     Route: 030
  2. METHOTREXATE [Suspect]
     Indication: ECTOPIC PREGNANCY TERMINATION
     Dosage: 50MG
     Route: 012
  3. SODIUM CHLORIDE [Concomitant]
     Route: 065

REACTIONS (3)
  - Pyrexia [Unknown]
  - Gastrointestinal disorder [Unknown]
  - Treatment failure [Recovered/Resolved]
